FAERS Safety Report 5164506-2 (Version None)
Quarter: 2006Q4

REPORT INFORMATION
  Report Type: 
  Country: None (occurrence: None)
  Receive Date: 20061205
  Receipt Date: 20061124
  Transmission Date: 20070319
  Serious: Yes (Hospitalization)
  Sender: FDA-Public Use
  Company Number: JACFRA2000000139

PATIENT
  Age: 60 Year
  Sex: Male

DRUGS (9)
  1. HALDOL [Suspect]
     Indication: SCHIZOPHRENIA
     Route: 048
     Dates: end: 20000113
  2. AUGMENTIN '125' [Concomitant]
     Indication: PYREXIA
     Route: 048
     Dates: start: 20000108, end: 20000113
  3. SURMONTIL [Concomitant]
     Indication: SCHIZOPHRENIA
     Route: 048
     Dates: end: 20000113
  4. SERESTA [Concomitant]
     Indication: SCHIZOPHRENIA
     Route: 048
     Dates: end: 20000113
  5. LARGACTIL [Concomitant]
     Indication: SCHIZOPHRENIA
     Route: 048
     Dates: end: 20000113
  6. DOLIPRANE [Concomitant]
     Indication: PYREXIA
     Route: 048
     Dates: start: 20000105, end: 20000109
  7. AKINETON [Concomitant]
     Route: 048
     Dates: end: 20000113
  8. SULFARLEM [Concomitant]
     Route: 048
     Dates: end: 20000113
  9. HEPT-A-MYL [Concomitant]
     Route: 048

REACTIONS (1)
  - RHABDOMYOLYSIS [None]
